FAERS Safety Report 4804405-6 (Version None)
Quarter: 2005Q4

REPORT INFORMATION
  Report Type: 
  Country: None (occurrence: None)
  Receive Date: 20051020
  Receipt Date: 20051013
  Transmission Date: 20060501
  Serious: Yes (Life-Threatening)
  Sender: FDA-Public Use
  Company Number: BR-GLAXOSMITHKLINE-A0578355A

PATIENT
  Age: 64 Year
  Sex: Male
  Weight: 108 kg

DRUGS (1)
  1. AVANDIA [Suspect]
     Dosage: 4MG PER DAY
     Route: 048
     Dates: start: 20051003, end: 20051011

REACTIONS (2)
  - HYPERGLYCAEMIA [None]
  - PAIN IN EXTREMITY [None]
